FAERS Safety Report 17114472 (Version 1)
Quarter: 2019Q4

REPORT INFORMATION
  Report Type: Spontaneous
  Country: DK (occurrence: DK)
  Receive Date: 20191205
  Receipt Date: 20191205
  Transmission Date: 20200122
  Serious: Yes (Hospitalization)
  Sender: FDA-Public Use
  Company Number: DK-TEVA-2019-DK-1146465

PATIENT
  Age: 65 Year
  Sex: Female

DRUGS (9)
  1. THIAMAZOLE [Concomitant]
     Active Substance: METHIMAZOLE
     Indication: HYPERTHYROIDISM
     Dosage: STRENGTH: 5 MG (10 MG PER DAY)
     Route: 048
     Dates: start: 20190812
  2. DICLOFENAC [Concomitant]
     Active Substance: DICLOFENAC
     Indication: RHEUMATOID ARTHRITIS
     Dosage: STRENGTH: 100 MG (100MG PER DAY)
     Route: 048
     Dates: start: 20190411
  3. PREDNISOLONE. [Suspect]
     Active Substance: PREDNISOLONE
     Indication: ADRENOCORTICAL STEROID THERAPY
     Dosage: STRENGTH: 25 MG (25MG PER DAY)
     Route: 048
     Dates: start: 201510, end: 201909
  4. SIMVASTATIN. [Concomitant]
     Active Substance: SIMVASTATIN
     Indication: HYPERCHOLESTEROLAEMIA
     Dosage: STRENGTH: 40 MG (40MG PER DAY)
     Route: 048
     Dates: start: 20150429
  5. METOPROLOL. [Concomitant]
     Active Substance: METOPROLOL
     Indication: HYPERTENSION
     Dosage: STRENGTH: 25 MG (25MG PER DAY)
     Route: 048
     Dates: start: 20180125
  6. ZOPICLONE [Concomitant]
     Active Substance: ZOPICLONE
     Indication: INSOMNIA
     Dosage: STRENGTH: 7.55 MG (7.5MG PER DAY)
     Route: 048
     Dates: start: 20160229
  7. ENALAPRIL [Concomitant]
     Active Substance: ENALAPRIL
     Indication: HYPERTENSION
     Dosage: STRENGTH: 20 MG PER DAY
     Route: 048
     Dates: start: 20180125
  8. PARACETAMOL [Concomitant]
     Active Substance: ACETAMINOPHEN
     Indication: PAIN
     Dosage: STRENGTH: 500 MG (1500MG PER DAY)
     Route: 048
     Dates: start: 20180712
  9. PROPRANOLOL [Concomitant]
     Active Substance: PROPRANOLOL HYDROCHLORIDE
     Indication: RESTLESSNESS
     Dosage: STRENGTH: 10 MG, DOSE: 1 TABLET ON DEMAND, MAXIMUM 4 TIMES DAILY
     Route: 048
     Dates: start: 20190705

REACTIONS (2)
  - Spinal compression fracture [Not Recovered/Not Resolved]
  - Back pain [Not Recovered/Not Resolved]

NARRATIVE: CASE EVENT DATE: 201909
